FAERS Safety Report 22624403 (Version 1)
Quarter: 2023Q2

REPORT INFORMATION
  Report Type: Spontaneous
  Country: CN (occurrence: CN)
  Receive Date: 20230621
  Receipt Date: 20230621
  Transmission Date: 20230721
  Serious: Yes (Hospitalization)
  Sender: FDA-Public Use
  Company Number: CN-JNJFOC-20230642542

PATIENT
  Age: 29 Year
  Sex: Female
  Weight: 81 kg

DRUGS (3)
  1. TYLENOL [Suspect]
     Active Substance: ACETAMINOPHEN
     Indication: Nasopharyngitis
     Route: 048
     Dates: start: 20230525, end: 20230525
  2. IBUPROFEN [Suspect]
     Active Substance: IBUPROFEN
     Indication: Nasopharyngitis
     Route: 048
     Dates: start: 20230525, end: 20230525
  3. AMOXICILLIN [Suspect]
     Active Substance: AMOXICILLIN
     Indication: Nasopharyngitis
     Route: 048
     Dates: start: 20230525, end: 20230526

REACTIONS (1)
  - Liver injury [Recovering/Resolving]

NARRATIVE: CASE EVENT DATE: 20230602
